FAERS Safety Report 24448910 (Version 4)
Quarter: 2025Q3

REPORT INFORMATION
  Report Type: Spontaneous
  Country: US (occurrence: US)
  Receive Date: 20241017
  Receipt Date: 20250909
  Transmission Date: 20251021
  Serious: Yes (Hospitalization)
  Sender: RECORDATI
  Company Number: US-RECORDATI RARE DISEASES-2024007565

PATIENT
  Sex: Female
  Weight: 52 kg

DRUGS (7)
  1. PANHEMATIN [Suspect]
     Active Substance: HEMIN
     Indication: Porphyria acute
     Route: 042
     Dates: start: 202403
  2. DULOXETINE [Concomitant]
     Active Substance: DULOXETINE
     Indication: Product used for unknown indication
  3. FOLIC ACID [Concomitant]
     Active Substance: FOLIC ACID
     Indication: Product used for unknown indication
  4. TRAZODONE [Concomitant]
     Active Substance: TRAZODONE HYDROCHLORIDE
     Indication: Product used for unknown indication
  5. DEXTROSE [Concomitant]
     Active Substance: DEXTROSE MONOHYDRATE
     Indication: Product used for unknown indication
  6. OXYCODONE [Concomitant]
     Active Substance: OXYCODONE
     Indication: Product used for unknown indication
  7. DILAUDID [Concomitant]
     Active Substance: HYDROMORPHONE HYDROCHLORIDE
     Indication: Product used for unknown indication

REACTIONS (17)
  - Hallucination [Not Recovered/Not Resolved]
  - Neuralgia [Not Recovered/Not Resolved]
  - Loss of consciousness [Unknown]
  - Syncope [Unknown]
  - Malaise [Not Recovered/Not Resolved]
  - Vision blurred [Unknown]
  - Insomnia [Unknown]
  - Brain fog [Not Recovered/Not Resolved]
  - Heavy menstrual bleeding [Unknown]
  - Vomiting [Unknown]
  - Pain [Unknown]
  - Hypoaesthesia [Unknown]
  - Nausea [Unknown]
  - Maternal exposure during pregnancy [Recovered/Resolved]
  - Complication of delivery [Unknown]
  - Inappropriate schedule of product administration [Recovered/Resolved]
  - Disease progression [Recovered/Resolved]

NARRATIVE: CASE EVENT DATE: 20240101
